FAERS Safety Report 6357222-2 (Version None)
Quarter: 2009Q3

REPORT INFORMATION
  Report Type: 
  Country: None (occurrence: None)
  Receive Date: 20090911
  Receipt Date: 20090908
  Transmission Date: 20100115
  Serious: Yes (Hospitalization)
  Sender: FDA-Public Use
  Company Number: JHP200900266

PATIENT
  Age: 46 Year
  Sex: Female

DRUGS (2)
  1. SUMATRIPTAN SUCCINATE [Suspect]
     Indication: MIGRAINE
     Dosage: MORE FREQUENT THAN USUAL
  2. CONTRACEPTIVES NOS () [Suspect]
     Indication: CONTRACEPTION

REACTIONS (5)
  - COLITIS ISCHAEMIC [None]
  - DRUG INTERACTION [None]
  - HAEMATOCHEZIA [None]
  - NEUTROPHIL PERCENTAGE INCREASED [None]
  - WHITE BLOOD CELL COUNT INCREASED [None]
